FAERS Safety Report 12078959 (Version 1)
Quarter: 2016Q1

REPORT INFORMATION
  Report Type: Report from Study
  Country: BR (occurrence: BR)
  Receive Date: 20160216
  Receipt Date: 20160216
  Transmission Date: 20160526
  Serious: Yes (Other)
  Sender: FDA-Public Use
  Company Number: PHHY2016BR011915

PATIENT
  Age: 83 Year
  Sex: Female
  Weight: 49 kg

DRUGS (5)
  1. EXELON [Suspect]
     Active Substance: RIVASTIGMINE TARTRATE
     Indication: DEMENTIA ALZHEIMER^S TYPE
     Dosage: 1.5 MG, UNK (6 YEARS AGO)
     Route: 048
     Dates: start: 2008
  2. EXELON PATCH [Suspect]
     Active Substance: RIVASTIGMINE
     Indication: DEMENTIA ALZHEIMER^S TYPE
     Dosage: 4.6 MG, (5 CM2 PATCH) QD
     Route: 062
     Dates: start: 201601
  3. RISPERIDONE. [Concomitant]
     Active Substance: RISPERIDONE
     Indication: DEMENTIA
     Dosage: 0.5 MG, QD (STARTED 6 MONTHS AGO)
     Route: 048
  4. EXELON [Suspect]
     Active Substance: RIVASTIGMINE TARTRATE
     Dosage: 3.0 MG, BID (STARTED 6 YEARS AGO)
     Route: 048
  5. EXELON [Suspect]
     Active Substance: RIVASTIGMINE TARTRATE
     Dosage: 3.0 MG, QD (STARTED 6 YEARS AGO)
     Route: 048
     Dates: end: 201512

REACTIONS (8)
  - Nausea [Unknown]
  - Abdominal discomfort [Recovered/Resolved]
  - Weight increased [Not Recovered/Not Resolved]
  - Drug intolerance [Unknown]
  - Retching [Recovered/Resolved]
  - Dementia Alzheimer^s type [Unknown]
  - Malaise [Recovered/Resolved]
  - Cow^s milk intolerance [Unknown]

NARRATIVE: CASE EVENT DATE: 201506
